FAERS Safety Report 7683339-6 (Version None)
Quarter: 2011Q3

REPORT INFORMATION
  Report Type: 
  Country: None (occurrence: None)
  Receive Date: 20110815
  Receipt Date: 20110809
  Transmission Date: 20111222
  Serious: Yes (Hospitalization)
  Sender: FDA-Public Use
  Company Number: US-BAYER-2011-047359

PATIENT
  Age: 76 Year
  Sex: Female
  Weight: 48.98 kg

DRUGS (6)
  1. SORAFENIB (RAF KINASE INHIBITOR) [Suspect]
     Dosage: 200 MG, BID
     Route: 048
     Dates: start: 20110421, end: 20110508
  2. MEGESTROL ACETATE [Concomitant]
     Indication: DECREASED APPETITE
     Dosage: 800 MG, QD
     Dates: start: 20110505
  3. TENOFOVIR DISOPROXIL FUMARATE [Concomitant]
     Indication: HEPATITIS B
     Dosage: 300 MG, QD
     Dates: start: 20100201
  4. SORAFENIB (RAF KINASE INHIBITOR) [Suspect]
     Indication: HEPATIC NEOPLASM MALIGNANT
     Dosage: 400 MG, BID
     Route: 048
     Dates: start: 20110406, end: 20110415
  5. LINIFANIB [Suspect]
     Indication: HEPATIC NEOPLASM MALIGNANT
  6. PROCHLORPERAZINE MALEATE [Concomitant]
     Indication: PROPHYLAXIS OF NAUSEA AND VOMITING
     Dosage: 10 MG, PRN
     Dates: start: 20110406

REACTIONS (3)
  - HEPATIC ENCEPHALOPATHY [None]
  - DELIRIUM [None]
  - VISUAL ACUITY REDUCED [None]
